FAERS Safety Report 10200839 (Version 1)
Quarter: 2014Q2

REPORT INFORMATION
  Report Type: Spontaneous
  Country: AT (occurrence: AT)
  Receive Date: 20140528
  Receipt Date: 20140528
  Transmission Date: 20141212
  Serious: Yes (Other)
  Sender: FDA-Public Use
  Company Number: AT-ELI_LILLY_AND_COMPANY-AT201405007959

PATIENT
  Sex: 0

DRUGS (4)
  1. GEMCITABINE HYDROCHLORIDE [Suspect]
     Indication: PANCREATIC CARCINOMA
     Dosage: 1000 MG/M2, OTHER
     Route: 065
  2. BEVACIZUMAB [Suspect]
     Indication: PANCREATIC CARCINOMA
     Dosage: 5 MG/KG, OTHER
     Route: 042
  3. DEXAMETHASONE PHOSPHATE [Concomitant]
     Indication: PREMEDICATION
     Route: 065
  4. TROPISETRON [Concomitant]
     Indication: PREMEDICATION

REACTIONS (1)
  - Axillary vein thrombosis [Unknown]
